FAERS Safety Report 17363506 (Version 3)
Quarter: 2020Q2

REPORT INFORMATION
  Report Type: Report from Study
  Country: US (occurrence: US)
  Receive Date: 20200203
  Receipt Date: 20200514
  Transmission Date: 20200713
  Serious: Yes (Hospitalization)
  Sender: FDA-Public Use
  Company Number: US-ACTELION-A-US2020-201206

PATIENT
  Sex: Female
  Weight: 58.96 kg

DRUGS (3)
  1. OPSUMIT [Suspect]
     Active Substance: MACITENTAN
     Indication: PULMONARY HYPERTENSION
     Dosage: 10 MG, QD
     Route: 048
  2. TADALAFIL. [Concomitant]
     Active Substance: TADALAFIL
  3. UPTRAVI [Suspect]
     Active Substance: SELEXIPAG
     Indication: PULMONARY HYPERTENSION
     Dosage: 1600 MCG, BID
     Route: 048

REACTIONS (7)
  - Gastrointestinal infection [Unknown]
  - Liver disorder [Unknown]
  - Dyspnoea exertional [Not Recovered/Not Resolved]
  - Gastritis [Unknown]
  - Hospitalisation [Unknown]
  - Palpitations [Not Recovered/Not Resolved]
  - Dyspnoea at rest [Not Recovered/Not Resolved]
